FAERS Safety Report 22035847 (Version 2)
Quarter: 2023Q2

REPORT INFORMATION
  Report Type: Report from Study
  Country: US (occurrence: None)
  Receive Date: 20230224
  Receipt Date: 20230410
  Transmission Date: 20230721
  Serious: Yes (Death, Hospitalization)
  Sender: FDA-Public Use
  Company Number: US-Eisai Medical Research-EC-2023-132139

PATIENT
  Age: 81 Year
  Sex: Male

DRUGS (2)
  1. LENVIMA [Suspect]
     Active Substance: LENVATINIB
     Indication: Hepatic cancer
     Route: 048
     Dates: start: 20230104, end: 20230120
  2. LENVIMA [Suspect]
     Active Substance: LENVATINIB
     Indication: Malignant neoplasm of thymus

REACTIONS (10)
  - Thrombosis [Unknown]
  - Malignant neoplasm progression [Fatal]
  - Pain [Not Recovered/Not Resolved]
  - Fatigue [Not Recovered/Not Resolved]
  - Blood pressure increased [Not Recovered/Not Resolved]
  - Restlessness [Not Recovered/Not Resolved]
  - Diarrhoea [Unknown]
  - Pyrexia [Recovered/Resolved]
  - Blood urine present [Recovering/Resolving]
  - Dysphonia [Not Recovered/Not Resolved]

NARRATIVE: CASE EVENT DATE: 20230101
